FAERS Safety Report 13416547 (Version 1)
Quarter: 2017Q2

REPORT INFORMATION
  Report Type: Spontaneous
  Country: US (occurrence: US)
  Receive Date: 20170407
  Receipt Date: 20170407
  Transmission Date: 20170830
  Serious: Yes (Other)
  Sender: FDA-Public Use
  Company Number: US-GLAXOSMITHKLINE-US2017046590

PATIENT
  Age: 79 Year
  Sex: Female
  Weight: 42 kg

DRUGS (1)
  1. TRIAMINIC MULTI-SYMPTOM FEVER AND COLD [Suspect]
     Active Substance: ACETAMINOPHEN\CHLORPHENIRAMINE\DEXTROMETHORPHAN\PHENYLEPHRINE
     Indication: SECRETION DISCHARGE
     Dosage: 1 TEASPOON, QD, AT NIGHT

REACTIONS (6)
  - Drug administered to patient of inappropriate age [Unknown]
  - Expired product administered [Unknown]
  - Spinal fracture [Unknown]
  - Musculoskeletal discomfort [Unknown]
  - Product use in unapproved indication [Unknown]
  - Fall [Unknown]
